FAERS Safety Report 10392547 (Version 1)
Quarter: 2014Q3

REPORT INFORMATION
  Report Type: Spontaneous
  Country: US (occurrence: None)
  Receive Date: 20140815
  Receipt Date: 20140815
  Transmission Date: 20150326
  Serious: Yes (Other)
  Sender: FDA-Public Use
  Company Number: 2014US01011

PATIENT
  Age: 88 Year
  Sex: Female

DRUGS (4)
  1. GEMCITABINE [Suspect]
     Active Substance: GEMCITABINE\GEMCITABINE HYDROCHLORIDE
     Indication: MALIGNANT PERITONEAL NEOPLASM
     Dosage: ON DAYS 1 AND 8 OF EACH CYCLE, INTRAVENOUS
     Route: 042
  2. GEMCITABINE [Suspect]
     Active Substance: GEMCITABINE\GEMCITABINE HYDROCHLORIDE
     Indication: METASTASIS
     Dosage: ON DAYS 1 AND 8 OF EACH CYCLE, INTRAVENOUS
     Route: 042
  3. EVEROLIMUS [Suspect]
     Active Substance: EVEROLIMUS
     Indication: MALIGNANT PERITONEAL NEOPLASM
     Dosage: ONCE DAILY OR 3 TIMES WEEKLY AS DIRECTED, ORAL
     Route: 048
  4. EVEROLIMUS [Suspect]
     Active Substance: EVEROLIMUS
     Indication: METASTASIS
     Dosage: ONCE DAILY OR 3 TIMES WEEKLY AS DIRECTED, ORAL
     Route: 048

REACTIONS (1)
  - Disease progression [None]
